FAERS Safety Report 18950490 (Version 1)
Quarter: 2021Q1

REPORT INFORMATION
  Report Type: Spontaneous
  Country: US (occurrence: US)
  Receive Date: 20210228
  Receipt Date: 20210228
  Transmission Date: 20210420
  Serious: No
  Sender: FDA-Public Use
  Company Number: US-ROCHE-2716866

PATIENT
  Age: 36 Year
  Sex: Female

DRUGS (2)
  1. XOLAIR [Suspect]
     Active Substance: OMALIZUMAB
     Indication: CHRONIC SPONTANEOUS URTICARIA
     Route: 065
     Dates: start: 202004
  2. XOLAIR [Suspect]
     Active Substance: OMALIZUMAB
     Route: 030

REACTIONS (3)
  - Urticaria [Unknown]
  - Injection site pain [Unknown]
  - Incorrect route of product administration [Unknown]
